FAERS Safety Report 11444927 (Version 1)
Quarter: 2015Q3

REPORT INFORMATION
  Report Type: Spontaneous
  Country: US (occurrence: None)
  Receive Date: 20150831
  Receipt Date: 20150831
  Transmission Date: 20151125
  Serious: Yes (Disabling)
  Sender: FDA-Public Use
  Company Number: None

PATIENT
  Age: 57 Year
  Sex: Female
  Weight: 77.11 kg

DRUGS (1)
  1. LEVAQUIN [Suspect]
     Active Substance: LEVOFLOXACIN
     Indication: SINUSITIS
     Route: 048
     Dates: start: 20150812, end: 20150820

REACTIONS (7)
  - Hypoaesthesia [None]
  - Joint swelling [None]
  - Musculoskeletal pain [None]
  - Pain [None]
  - Muscular weakness [None]
  - Peripheral swelling [None]
  - Paraesthesia [None]

NARRATIVE: CASE EVENT DATE: 20150820
